FAERS Safety Report 8074432-7 (Version None)
Quarter: 2012Q1

REPORT INFORMATION
  Report Type: 
  Country: None (occurrence: None)
  Receive Date: 20120126
  Receipt Date: 20120120
  Transmission Date: 20120608
  Serious: Yes (Other)
  Sender: FDA-Public Use
  Company Number: IT-GLAXOSMITHKLINE-B0777396A

PATIENT
  Sex: Female

DRUGS (1)
  1. VENTOLIN [Suspect]
     Indication: SPIROMETRY
     Dosage: 2PUFF PER DAY
     Route: 055
     Dates: start: 20111025, end: 20111025

REACTIONS (3)
  - PRESYNCOPE [None]
  - HYPERHIDROSIS [None]
  - PALPITATIONS [None]
